FAERS Safety Report 24278087 (Version 1)
Quarter: 2024Q3

REPORT INFORMATION
  Report Type: Spontaneous
  Country: US (occurrence: None)
  Receive Date: 20240830
  Receipt Date: 20240830
  Transmission Date: 20241017
  Serious: Yes (Other)
  Sender: Public
  Company Number: None

PATIENT
  Age: 56 Year
  Sex: Female

DRUGS (1)
  1. POMALYST [Suspect]
     Active Substance: POMALIDOMIDE
     Indication: Plasma cell myeloma
     Dosage: 3MG QD ORAL
     Route: 048
     Dates: start: 20231003, end: 20240819

REACTIONS (5)
  - Asthenia [None]
  - Fatigue [None]
  - Dyspnoea [None]
  - Dizziness [None]
  - Mood altered [None]

NARRATIVE: CASE EVENT DATE: 20240830
